FAERS Safety Report 5377965-7 (Version None)
Quarter: 2007Q2

REPORT INFORMATION
  Report Type: 
  Country: None (occurrence: None)
  Receive Date: 20070629
  Receipt Date: 20070622
  Transmission Date: 20071010
  Serious: Yes (Death, Life-Threatening, Hospitalization, Other)
  Sender: FDA-Public Use
  Company Number: 2007US000683

PATIENT
  Age: 67 Year
  Sex: Male
  Weight: 66 kg

DRUGS (16)
  1. PROGRAF [Suspect]
     Indication: LUNG TRANSPLANT
     Dosage: 1 MG, BID, ORAL
     Route: 048
     Dates: start: 20041117, end: 20070516
  2. LOPRESSOR [Concomitant]
  3. PRAVACHOL [Concomitant]
  4. MULTIVITAMIN [Concomitant]
  5. IMODIUM [Concomitant]
  6. NEXIUM [Concomitant]
  7. MAGNESIUM OXIDE (MAGNESIUM OXIDE) [Concomitant]
  8. VITAMIN D [Concomitant]
  9. MYCELEX [Concomitant]
  10. CALCIUM CARBONATE [Concomitant]
  11. SEPTRA DS [Concomitant]
  12. INSULIN ILETIN I REGULAR (INSULIN) [Concomitant]
  13. ASPIRIN [Concomitant]
  14. EZETIMIBE W/SIMVASTATIN (SIMVASTATIN, EZETIMIBE) [Concomitant]
  15. ACYCLOVIR [Concomitant]
  16. MEGACE [Concomitant]

REACTIONS (12)
  - ABDOMINAL ABSCESS [None]
  - BILIARY DILATATION [None]
  - BLOOD ALKALINE PHOSPHATASE INCREASED [None]
  - BLOOD CREATININE INCREASED [None]
  - CANDIDIASIS [None]
  - CHOLANGITIS [None]
  - GASTRIC CANCER [None]
  - HYPOTENSION [None]
  - LEUKOCYTOSIS [None]
  - PLEURAL EFFUSION [None]
  - POST PROCEDURAL COMPLICATION [None]
  - SIGNET-RING CELL CARCINOMA [None]
